FAERS Safety Report 15736110 (Version 1)
Quarter: 2018Q4

REPORT INFORMATION
  Report Type: Spontaneous
  Country: US (occurrence: US)
  Receive Date: 20181203
  Receipt Date: 20181203
  Transmission Date: 20190205
  Serious: Yes (Hospitalization)
  Sender: FDA-Public Use
  Company Number: None

PATIENT
  Age: 59 Year
  Sex: Female
  Weight: 98.2 kg

DRUGS (1)
  1. TEMOZOLOMIDE. [Suspect]
     Active Substance: TEMOZOLOMIDE
     Dates: end: 20181107

REACTIONS (5)
  - Asthenia [None]
  - Neurological symptom [None]
  - Fall [None]
  - Chronic obstructive pulmonary disease [None]
  - Hyperglycaemia [None]

NARRATIVE: CASE EVENT DATE: 20181119
